FAERS Safety Report 23277471 (Version 1)
Quarter: 2023Q4

REPORT INFORMATION
  Report Type: Spontaneous
  Country: US (occurrence: None)
  Receive Date: 20231207
  Receipt Date: 20231207
  Transmission Date: 20240109
  Serious: Yes (Hospitalization)
  Sender: FDA-Public Use
  Company Number: None

PATIENT
  Age: 90 Year
  Sex: Female
  Weight: 53.7 kg

DRUGS (1)
  1. CLOPIDOGREL [Suspect]
     Active Substance: CLOPIDOGREL BISULFATE
     Indication: Antiplatelet therapy
     Dosage: FREQUENCY : DAILY;?
     Route: 048
     Dates: start: 20231205, end: 20231206

REACTIONS (6)
  - Lip swelling [None]
  - Swelling face [None]
  - Therapy cessation [None]
  - Dysphonia [None]
  - Therapy change [None]
  - Upper respiratory tract congestion [None]

NARRATIVE: CASE EVENT DATE: 20231206
